FAERS Safety Report 24068543 (Version 1)
Quarter: 2024Q3

REPORT INFORMATION
  Report Type: Report from Study
  Country: US (occurrence: US)
  Receive Date: 20240710
  Receipt Date: 20240710
  Transmission Date: 20241017
  Serious: No
  Sender: ROCHE
  Company Number: US-ROCHE-3404975

PATIENT
  Age: 75 Year
  Sex: Female

DRUGS (2)
  1. VABYSMO [Suspect]
     Active Substance: FARICIMAB\FARICIMAB-SVOA
     Indication: Neovascular age-related macular degeneration
     Dosage: DATE OF SERVICE: 5/5/2023, 5/12/2023 AND 6/2/2023 (VIAL, 6MG), 15/SEP/2023, 28/SEP/2023, 08/DEC/2023
     Route: 065
  2. VABYSMO [Suspect]
     Active Substance: FARICIMAB\FARICIMAB-SVOA
     Dosage: DATE OF SERVICE: 07/JUL/2023, 21/JUL/2023 (SYRINGE, 60MG)
     Route: 065

REACTIONS (2)
  - Off label use [Unknown]
  - No adverse event [Unknown]
